FAERS Safety Report 14209143 (Version 1)
Quarter: 2017Q4

REPORT INFORMATION
  Report Type: Spontaneous
  Country: US (occurrence: US)
  Receive Date: 20171121
  Receipt Date: 20171121
  Transmission Date: 20180321
  Serious: Yes (Other)
  Sender: FDA-Public Use
  Company Number: US-ASTELLAS-2017US043800

PATIENT
  Age: 81 Year
  Sex: Female

DRUGS (3)
  1. LEXISCAN [Suspect]
     Active Substance: REGADENOSON
     Indication: CHEST PAIN
     Dosage: UNK, TOTAL DOSE
     Route: 065
     Dates: start: 20170927, end: 20170927
  2. LEXISCAN [Suspect]
     Active Substance: REGADENOSON
     Indication: AORTIC ARTERIOSCLEROSIS
  3. LEXISCAN [Suspect]
     Active Substance: REGADENOSON
     Indication: SCAN MYOCARDIAL PERFUSION

REACTIONS (1)
  - Ventricular tachycardia [Recovered/Resolved]

NARRATIVE: CASE EVENT DATE: 20170927
